FAERS Safety Report 7445412-7 (Version None)
Quarter: 2011Q2

REPORT INFORMATION
  Report Type: 
  Country: None (occurrence: None)
  Receive Date: 20110429
  Receipt Date: 20110420
  Transmission Date: 20111010
  Serious: Yes (Other)
  Sender: FDA-Public Use
  Company Number: PHHY2011US11415

PATIENT
  Age: 89 Year
  Sex: Male

DRUGS (1)
  1. EXELON [Suspect]
     Indication: DEMENTIA ALZHEIMER'S TYPE
     Dosage: UNK
     Route: 062

REACTIONS (8)
  - EATING DISORDER [None]
  - ABNORMAL BEHAVIOUR [None]
  - SLEEP DISORDER [None]
  - DISORIENTATION [None]
  - DEPRESSION [None]
  - HYPOACUSIS [None]
  - DRUG ADMINISTRATION ERROR [None]
  - BEDRIDDEN [None]
